FAERS Safety Report 24781191 (Version 1)
Quarter: 2024Q4

REPORT INFORMATION
  Report Type: Spontaneous
  Country: US (occurrence: US)
  Receive Date: 20241227
  Receipt Date: 20241227
  Transmission Date: 20250115
  Serious: No
  Sender: CELLTRION
  Company Number: US-CELLTRION INC.-2024US007743

PATIENT

DRUGS (4)
  1. TRUXIMA [Suspect]
     Active Substance: RITUXIMAB-ABBS
     Indication: Immunodeficiency common variable
     Dosage: 700 MG IV ADMINISTER OVER 3 HOURS
     Route: 042
     Dates: start: 20240207
  2. TRUXIMA [Suspect]
     Active Substance: RITUXIMAB-ABBS
     Indication: Bronchiectasis
     Dosage: 700 MG IV ADMINISTER OVER 3 HOURS
     Route: 042
     Dates: start: 20240214
  3. TRUXIMA [Suspect]
     Active Substance: RITUXIMAB-ABBS
     Dosage: 700 MG IV ADMINISTER OVER 3 HOURS
     Route: 042
     Dates: start: 20240221
  4. TRUXIMA [Suspect]
     Active Substance: RITUXIMAB-ABBS
     Dosage: 700 MG IV ADMINISTER OVER 3 HOURS
     Route: 042
     Dates: start: 20240228

REACTIONS (1)
  - Off label use [Unknown]
